FAERS Safety Report 16109026 (Version 1)
Quarter: 2019Q1

REPORT INFORMATION
  Report Type: Spontaneous
  Country: US (occurrence: US)
  Receive Date: 20190323
  Receipt Date: 20190323
  Transmission Date: 20190418
  Serious: No
  Sender: FDA-Public Use
  Company Number: US-THERAPEUTICSMD-2019TMD00040

PATIENT
  Sex: Female
  Weight: 77.1 kg

DRUGS (10)
  1. IMVEXXY [Suspect]
     Active Substance: ESTRADIOL
     Dosage: 1 DOSAGE UNITS, 2X/WEEK; BEFORE BED
     Route: 067
     Dates: start: 201901
  2. VITAMIN C [Concomitant]
     Active Substance: ASCORBIC ACID
  3. IMVEXXY [Suspect]
     Active Substance: ESTRADIOL
     Indication: ATROPHIC VULVOVAGINITIS
     Dosage: 1 DOSAGE UNITS, 2X/WEEK; BEFORE BED
     Route: 067
     Dates: start: 2018, end: 2018
  4. CLOBETASOL [Concomitant]
     Active Substance: CLOBETASOL
     Route: 067
  5. UNSPECIFIED MEDICATON FOR THYROID [Concomitant]
  6. MAGNESIUM [Concomitant]
     Active Substance: MAGNESIUM
  7. VITAMIN B12 [Concomitant]
     Active Substance: CYANOCOBALAMIN
  8. UNSPECIFIED MEDICATION FOR CHOLESTEROL [Concomitant]
  9. VITAMIN D [Concomitant]
     Active Substance: CHOLECALCIFEROL
  10. BABY ASPIRIN [Concomitant]
     Active Substance: ASPIRIN

REACTIONS (3)
  - Off label use [Not Recovered/Not Resolved]
  - Vaginal odour [Recovered/Resolved]
  - Weight increased [Not Recovered/Not Resolved]

NARRATIVE: CASE EVENT DATE: 2018
